FAERS Safety Report 6417129-9 (Version None)
Quarter: 2009Q4

REPORT INFORMATION
  Report Type: 
  Country: None (occurrence: None)
  Receive Date: 20091026
  Receipt Date: 20091015
  Transmission Date: 20100525
  Serious: Yes (Hospitalization)
  Sender: FDA-Public Use
  Company Number: DE-2009-2129

PATIENT
  Sex: Female

DRUGS (2)
  1. NAVELBINE [Suspect]
     Indication: BREAST CANCER
     Dosage: 40 MG IV
     Route: 042
     Dates: start: 20090922
  2. HERCEPTIN [Suspect]
     Indication: BREAST CANCER
     Dates: start: 20090922

REACTIONS (4)
  - BACK PAIN [None]
  - FATIGUE [None]
  - HAEMOLYTIC ANAEMIA [None]
  - PALLOR [None]
